FAERS Safety Report 6375754-8 (Version None)
Quarter: 2009Q3

REPORT INFORMATION
  Report Type: 
  Country: None (occurrence: None)
  Receive Date: 20090922
  Receipt Date: 20090922
  Transmission Date: 20100115
  Serious: Yes (Other)
  Sender: FDA-Public Use
  Company Number: None

PATIENT
  Age: 37 Year
  Sex: Female
  Weight: 61.2356 kg

DRUGS (1)
  1. ACTONEL [Suspect]
     Indication: OSTEOPOROSIS
     Dosage: 1 X ON THE WEEKEND OTHER
     Route: 050
     Dates: start: 20050407, end: 20090116

REACTIONS (2)
  - JAW DISORDER [None]
  - TOOTH DISORDER [None]
